FAERS Safety Report 5405596-9 (Version None)
Quarter: 2007Q3

REPORT INFORMATION
  Report Type: 
  Country: None (occurrence: None)
  Receive Date: 20070806
  Receipt Date: 20070802
  Transmission Date: 20080115
  Serious: Yes (Death, Other)
  Sender: FDA-Public Use
  Company Number: US-BAYER-200710404BWH

PATIENT
  Age: 58 Year
  Sex: Male

DRUGS (1)
  1. NEXAVAR [Suspect]
     Indication: RENAL CELL CARCINOMA STAGE UNSPECIFIED
     Dosage: TOTAL DAILY DOSE: 800 MG  UNIT DOSE: 200 MG
     Route: 048
     Dates: start: 20061220

REACTIONS (4)
  - INTESTINAL PERFORATION [None]
  - METASTATIC RENAL CELL CARCINOMA [None]
  - MULTI-ORGAN FAILURE [None]
  - PERITONITIS [None]
